FAERS Safety Report 24639634 (Version 3)
Quarter: 2025Q3

REPORT INFORMATION
  Report Type: Spontaneous
  Country: US (occurrence: US)
  Receive Date: 20241119
  Receipt Date: 20250915
  Transmission Date: 20251021
  Serious: No
  Sender: SUNOVION
  Company Number: US-SMPA-2024SPA005000AA

PATIENT
  Age: 63 Year
  Sex: Male

DRUGS (6)
  1. ORGOVYX [Suspect]
     Active Substance: RELUGOLIX
     Indication: Prostate cancer
     Dosage: 360 MG, SINGLE
     Route: 048
  2. ORGOVYX [Suspect]
     Active Substance: RELUGOLIX
     Dosage: 120 MG, QD
     Route: 048
  3. XTANDI [Concomitant]
     Active Substance: ENZALUTAMIDE
  4. XGEVA [Concomitant]
     Active Substance: DENOSUMAB
  5. LOSARTAN [Concomitant]
     Active Substance: LOSARTAN
  6. VITAMIN D [Concomitant]
     Active Substance: VITAMIN D NOS

REACTIONS (10)
  - Vitamin D decreased [Unknown]
  - Muscular weakness [Unknown]
  - Weight increased [Recovered/Resolved]
  - Fatigue [Recovered/Resolved]
  - Red blood cell count decreased [Unknown]
  - Asthenia [Unknown]
  - Hot flush [Unknown]
  - Myalgia [Unknown]
  - Fatigue [Unknown]
  - Weight increased [Unknown]
